FAERS Safety Report 16541349 (Version 1)
Quarter: 2019Q3

REPORT INFORMATION
  Report Type: Spontaneous
  Country: CN (occurrence: CN)
  Receive Date: 20190708
  Receipt Date: 20190708
  Transmission Date: 20191004
  Serious: Yes (Other)
  Sender: FDA-Public Use
  Company Number: CN-009507513-1907CHN000720

PATIENT
  Age: 91 Year
  Sex: Male

DRUGS (1)
  1. TIENAM [Suspect]
     Active Substance: CILASTATIN SODIUM\IMIPENEM
     Indication: INFECTION
     Dosage: 1 GRAM, TID
     Route: 041
     Dates: start: 20190624, end: 20190627

REACTIONS (4)
  - Mania [Recovering/Resolving]
  - Bile duct stone [Unknown]
  - Pressure of speech [Recovering/Resolving]
  - Choreoathetosis [Recovering/Resolving]

NARRATIVE: CASE EVENT DATE: 201906
